FAERS Safety Report 6711571-4 (Version None)
Quarter: 2010Q2

REPORT INFORMATION
  Report Type: 
  Country: None (occurrence: None)
  Receive Date: 20100505
  Receipt Date: 20100423
  Transmission Date: 20101027
  Serious: Yes (Other)
  Sender: FDA-Public Use
  Company Number: PHHY2010CA26225

PATIENT
  Sex: Female

DRUGS (1)
  1. GENTEAL (NVO) [Suspect]

REACTIONS (2)
  - CAUSTIC INJURY [None]
  - HYPERSENSITIVITY [None]
